FAERS Safety Report 6144524-8 (Version None)
Quarter: 2009Q2

REPORT INFORMATION
  Report Type: 
  Country: None (occurrence: None)
  Receive Date: 20090406
  Receipt Date: 20090309
  Transmission Date: 20091009
  Serious: No
  Sender: FDA-Public Use
  Company Number: US-BAYER-200910801BCC

PATIENT
  Age: 74 Year
  Sex: Male
  Weight: 79 kg

DRUGS (6)
  1. ALEVE [Suspect]
     Indication: DRUG USE FOR UNKNOWN INDICATION
     Dosage: TOTAL DAILY DOSE: 440 MG  UNIT DOSE: 220 MG
     Route: 048
     Dates: start: 20090301, end: 20090308
  2. FLOMAX [Concomitant]
  3. TRICOR [Concomitant]
  4. SIMVASTATIN [Concomitant]
  5. METOPROLOL [Concomitant]
  6. DIOVAN [Concomitant]

REACTIONS (1)
  - EPISTAXIS [None]
